FAERS Safety Report 24131079 (Version 1)
Quarter: 2024Q3

REPORT INFORMATION
  Report Type: Spontaneous
  Country: ZA (occurrence: ZA)
  Receive Date: 20240724
  Receipt Date: 20240724
  Transmission Date: 20241017
  Serious: Yes (Death, Hospitalization)
  Sender: DR REDDYS
  Company Number: ZA-RDY-LIT/ZAF/24/0010697

PATIENT
  Age: 48 Year
  Sex: Male

DRUGS (4)
  1. CIPROFLOXACIN [Suspect]
     Active Substance: CIPROFLOXACIN
     Indication: Gastroenteritis
  2. CIPROFLOXACIN [Suspect]
     Active Substance: CIPROFLOXACIN
     Indication: Dehydration
  3. LACTATED RINGERS SOLUTION [Suspect]
     Active Substance: CALCIUM CHLORIDE\POTASSIUM CHLORIDE\SODIUM CHLORIDE\SODIUM LACTATE
     Indication: Gastroenteritis
     Route: 042
  4. LACTATED RINGERS SOLUTION [Suspect]
     Active Substance: CALCIUM CHLORIDE\POTASSIUM CHLORIDE\SODIUM CHLORIDE\SODIUM LACTATE
     Indication: Dehydration

REACTIONS (4)
  - Condition aggravated [Fatal]
  - Drug ineffective for unapproved indication [Fatal]
  - Bradycardia [Fatal]
  - Blood pressure decreased [Fatal]
